FAERS Safety Report 10410106 (Version 1)
Quarter: 2014Q3

REPORT INFORMATION
  Report Type: Spontaneous
  Country: CA (occurrence: CA)
  Receive Date: 20140826
  Receipt Date: 20140826
  Transmission Date: 20150326
  Serious: Yes (Other)
  Sender: FDA-Public Use
  Company Number: CA-BRISTOL-MYERS SQUIBB COMPANY-21256672

PATIENT
  Age: 22 Year
  Sex: Male

DRUGS (4)
  1. ABILIFY MAINTENA [Suspect]
     Active Substance: ARIPIPRAZOLE
     Indication: SCHIZOPHRENIA
     Dosage: SUSP FOR INJ?07JUL14, 3RD INFUSION
  2. ATIVAN [Concomitant]
     Active Substance: LORAZEPAM
  3. ABILIFY [Suspect]
     Active Substance: ARIPIPRAZOLE
     Indication: SCHIZOPHRENIA
     Route: 048
  4. LAMOTRIGINE. [Suspect]
     Active Substance: LAMOTRIGINE

REACTIONS (5)
  - Anger [Unknown]
  - Off label use [Unknown]
  - Rash [Recovered/Resolved]
  - Affective disorder [Unknown]
  - Paranoia [Unknown]
